FAERS Safety Report 25327152 (Version 3)
Quarter: 2025Q4

REPORT INFORMATION
  Report Type: Spontaneous
  Country: EU (occurrence: EU)
  Receive Date: 20250517
  Receipt Date: 20251203
  Transmission Date: 20260118
  Serious: Yes (Life-Threatening, Hospitalization, Other)
  Sender: MERCK SHARP & DOHME LLC
  Company Number: EU-HIKMA PHARMACEUTICALS USA INC.-ES-H14001-25-03718

PATIENT
  Age: 65 Year
  Sex: Female
  Weight: 70.5 kg

DRUGS (31)
  1. PEMBROLIZUMAB [Suspect]
     Active Substance: PEMBROLIZUMAB
     Indication: Non-small cell lung cancer
     Dosage: 750 MILLIGRAMS, 3W
     Route: 042
     Dates: start: 20250327, end: 20250327
  2. PEMBROLIZUMAB [Suspect]
     Active Substance: PEMBROLIZUMAB
     Indication: Non-small cell lung cancer
     Dosage: 750 MILLIGRAMS, 3W
     Route: 042
     Dates: start: 20250123, end: 20250123
  3. PEMBROLIZUMAB [Suspect]
     Active Substance: PEMBROLIZUMAB
     Indication: Non-small cell lung cancer
     Dosage: 750 MILLIGRAMS, 3W
     Route: 042
     Dates: start: 20250102, end: 20250102
  4. PEMBROLIZUMAB [Suspect]
     Active Substance: PEMBROLIZUMAB
     Indication: Non-small cell lung cancer
     Dosage: 750 MILLIGRAMS, 3W
     Route: 042
     Dates: start: 20250306, end: 20250306
  5. PEMBROLIZUMAB [Suspect]
     Active Substance: PEMBROLIZUMAB
     Indication: Non-small cell lung cancer
     Dosage: 750 MILLIGRAMS, 3W
     Route: 042
     Dates: start: 20250213, end: 20250213
  6. LEVOTHYROXINE SODIUM [Concomitant]
     Active Substance: LEVOTHYROXINE SODIUM
     Indication: Product used for unknown indication
     Dosage: UNKNOWN
     Dates: start: 2016
  7. AMOXICILLIN\CLAVULANIC ACID [Concomitant]
     Active Substance: AMOXICILLIN\CLAVULANIC ACID
     Indication: Product used for unknown indication
     Dosage: 1 TABLET, TID
     Dates: start: 20250403
  8. PEMETREXED [Suspect]
     Active Substance: PEMETREXED
     Indication: Non-small cell lung cancer
     Dosage: 500 MG/M2 (TOTAL DOSE:810MG), EVERY 3 WEEKS
     Route: 042
     Dates: start: 20250102, end: 20250102
  9. PEMETREXED [Suspect]
     Active Substance: PEMETREXED
     Indication: Non-small cell lung cancer
     Dosage: 375 MG/M2 (TOTAL DOSE:608MG), EVERY 3 WEEKS
     Route: 042
     Dates: start: 20250306, end: 20250306
  10. PEMETREXED [Suspect]
     Active Substance: PEMETREXED
     Indication: Non-small cell lung cancer
     Dosage: 450 MG/M2 (TOTAL DOSE:729MG), EVERY 3 WEEKS
     Route: 042
     Dates: start: 20250213, end: 20250213
  11. PEMETREXED [Suspect]
     Active Substance: PEMETREXED
     Indication: Non-small cell lung cancer
     Dosage: 375 MG/M2 (TOTAL DOSE:608MG), EVERY 3 WEEKS
     Route: 042
     Dates: start: 20250327, end: 20250327
  12. PEMETREXED [Suspect]
     Active Substance: PEMETREXED
     Indication: Non-small cell lung cancer
     Dosage: 450 MG/M2 (TOTAL DOSE:729MG), EVERY 3 WEEKS
     Route: 042
     Dates: start: 20250123, end: 20250123
  13. DEXAMETHASONE [Concomitant]
     Active Substance: DEXAMETHASONE
     Indication: Product used for unknown indication
     Dosage: UNKNOWN
     Dates: start: 20250306, end: 20250327
  14. ENALAPRIL [Concomitant]
     Active Substance: ENALAPRIL
     Indication: Product used for unknown indication
     Dosage: UNKNOWN
     Dates: start: 2007
  15. CYANOCOBALAMIN\FOLIC ACID [Concomitant]
     Active Substance: CYANOCOBALAMIN\FOLIC ACID
     Indication: Product used for unknown indication
     Dosage: UNKNOWN
     Dates: start: 20241205
  16. OMEPRAZOLE [Concomitant]
     Active Substance: OMEPRAZOLE
     Indication: Product used for unknown indication
     Dosage: UNKNOWN
     Dates: start: 20250112
  17. OPTOVIT E [Concomitant]
     Indication: Product used for unknown indication
     Dosage: UNKNOWN
     Dates: start: 20241209
  18. ATORVASTATIN [Concomitant]
     Active Substance: ATORVASTATIN
     Indication: Product used for unknown indication
     Dosage: UNKNOWN
     Dates: start: 2007
  19. CARBOPLATIN [Suspect]
     Active Substance: CARBOPLATIN
     Indication: Non-small cell lung cancer
     Dosage: AUC 4 (TOTAL DOSE ADMINISTERED: 396MG) EVERY 3 WEEKS
     Route: 042
     Dates: start: 20250213, end: 20250213
  20. CARBOPLATIN [Suspect]
     Active Substance: CARBOPLATIN
     Indication: Non-small cell lung cancer
     Dosage: AUC 3.75 (TOTAL DOSE ADMINISTERED: 371 MG), EVERY 3 WEEKS
     Route: 042
     Dates: start: 20250306, end: 20250306
  21. CARBOPLATIN [Suspect]
     Active Substance: CARBOPLATIN
     Indication: Non-small cell lung cancer
     Dosage: AUC 4 (TOTAL DOSE ADMINISTERED: 396MG) EVERY 3 WEEKS
     Route: 042
     Dates: start: 20250123, end: 20250123
  22. CARBOPLATIN [Suspect]
     Active Substance: CARBOPLATIN
     Indication: Non-small cell lung cancer
     Dosage: AUC 5 (TOTAL DOSE ADMINISTERED: 495MG) EVERY 3 WEEKS
     Route: 042
     Dates: start: 20250102, end: 20250102
  23. DIAZEPAM [Concomitant]
     Active Substance: DIAZEPAM
     Indication: Product used for unknown indication
     Dosage: UNKNOWN
     Dates: start: 20250327, end: 20250327
  24. MYCOSTATIN [Concomitant]
     Active Substance: NYSTATIN
     Indication: Product used for unknown indication
     Dosage: UNKNOWN
     Dates: start: 20241205
  25. ACETAMINOPHEN [Concomitant]
     Active Substance: ACETAMINOPHEN
     Indication: Product used for unknown indication
     Dosage: UNKNOWN
     Dates: start: 20250306, end: 20250327
  26. FOSAPREPITANT [Concomitant]
     Active Substance: FOSAPREPITANT
     Indication: Product used for unknown indication
     Dosage: UNKNOWN
     Dates: start: 20250306, end: 20250306
  27. SPIRIVA [Concomitant]
     Active Substance: TIOTROPIUM BROMIDE MONOHYDRATE
     Indication: Product used for unknown indication
     Dosage: UNKNOWN
     Dates: start: 202411
  28. DEXCHLORPHENIRAMINE [Concomitant]
     Active Substance: DEXCHLORPHENIRAMINE
     Indication: Product used for unknown indication
     Dosage: UNKNOWN
     Dates: start: 20250306, end: 20250327
  29. ONDANSETRON [Concomitant]
     Active Substance: ONDANSETRON
     Indication: Product used for unknown indication
     Dosage: UNKNOWN
     Dates: start: 20250306, end: 20250327
  30. CAPTOPRIL [Concomitant]
     Active Substance: CAPTOPRIL
     Indication: Product used for unknown indication
     Dosage: UNKNOWN
     Dates: start: 20250327, end: 20250327
  31. PREDNICARBATE [Concomitant]
     Active Substance: PREDNICARBATE
     Indication: Product used for unknown indication
     Dosage: UNKNOWN
     Dates: start: 20250306

REACTIONS (7)
  - Febrile neutropenia [Recovered/Resolved]
  - Asthenia [Unknown]
  - Myalgia [Unknown]
  - Condition aggravated [Unknown]
  - Diarrhoea [Unknown]
  - Arthralgia [Unknown]
  - Pyrexia [Unknown]

NARRATIVE: CASE EVENT DATE: 20250405
